FAERS Safety Report 8327445-1 (Version None)
Quarter: 2012Q2

REPORT INFORMATION
  Report Type: 
  Country: None (occurrence: None)
  Receive Date: 20120423
  Receipt Date: 20120409
  Transmission Date: 20120825
  Serious: Yes (Hospitalization, Other)
  Sender: FDA-Public Use
  Company Number: 2011028627

PATIENT
  Age: 64 Year
  Sex: Female
  Weight: 83.4619 kg

DRUGS (29)
  1. TRAMADOL HYDROCHLORIDE [Concomitant]
  2. ADVAIR HFA [Concomitant]
  3. ZOLPIDEM [Concomitant]
  4. CYMBALTA [Concomitant]
  5. PREDNISONE [Concomitant]
  6. ZYRTEC [Concomitant]
  7. CALCIUM CARBONATE [Concomitant]
  8. HIZENTRA [Suspect]
     Indication: IMMUNODEFICIENCY COMMON VARIABLE
     Dosage: 4 GM 20 ML VIAL SUBCUTANEOUS
     Route: 058
  9. HIZENTRA [Suspect]
     Indication: IMMUNODEFICIENCY COMMON VARIABLE
  10. GLYBURIDE [Concomitant]
  11. NEXIUM [Concomitant]
  12. PROVENTIL [Concomitant]
  13. LISINOPRIL [Concomitant]
  14. AZITHROMYCIN [Concomitant]
  15. MUCINEX [Concomitant]
  16. DYAZIDE [Concomitant]
  17. LEVAQUIN [Concomitant]
  18. HIZENTRA [Suspect]
     Indication: IMMUNODEFICIENCY COMMON VARIABLE
     Dosage: 10 G 1X/WEEK, 2 GM 10 ML VIAL; 50 ML IN 3 SITES USING F275 RATE TUBING SUBCUTANEOUS
     Route: 058
     Dates: start: 20110127
  19. HIZENTRA [Suspect]
     Indication: IMMUNODEFICIENCY COMMON VARIABLE
  20. ZETIA [Concomitant]
  21. LEVOTHYROXINE SODIUM [Concomitant]
  22. NASONEX [Concomitant]
  23. ESTRACE [Concomitant]
  24. MULTIVITAMIN (ACCOMIN MULTIVITAMIN) [Concomitant]
  25. PREDNISOLONE AC (METHYLPREDNISOLONE ACETATE) [Concomitant]
  26. CLONAZEPAM [Concomitant]
  27. SINGULAIR [Concomitant]
  28. FUROSEMIDE [Concomitant]
  29. HYDROCODONE [Concomitant]

REACTIONS (7)
  - BRONCHITIS [None]
  - EAR INFECTION [None]
  - DEEP VEIN THROMBOSIS [None]
  - PHARYNGITIS [None]
  - RESPIRATORY TRACT INFECTION [None]
  - EYE INFECTION [None]
  - RHINITIS [None]
